FAERS Safety Report 25726832 (Version 2)
Quarter: 2025Q4

REPORT INFORMATION
  Report Type: Spontaneous
  Country: CA (occurrence: CA)
  Receive Date: 20250826
  Receipt Date: 20251020
  Transmission Date: 20260118
  Serious: Yes (Other)
  Sender: PFIZER
  Company Number: CA-PFIZER INC-202500168245

PATIENT
  Age: 56 Year
  Sex: Female

DRUGS (2)
  1. RUXIENCE [Suspect]
     Active Substance: RITUXIMAB-PVVR
     Indication: Multiple sclerosis
     Dosage: 1000 MG, 2 WEEKS (2 DOSES)
     Route: 042
     Dates: start: 20240923, end: 20241007
  2. RUXIENCE [Suspect]
     Active Substance: RITUXIMAB-PVVR
     Dosage: 1000 MG, 6 MONTHS
     Route: 042
     Dates: start: 20250414

REACTIONS (2)
  - Precancerous condition [Unknown]
  - Endocrine neoplasm [Unknown]
